FAERS Safety Report 9410965 (Version 1)
Quarter: 2013Q3

REPORT INFORMATION
  Report Type: Spontaneous
  Country: AU (occurrence: AU)
  Receive Date: 20130719
  Receipt Date: 20130719
  Transmission Date: 20140515
  Serious: Yes (Hospitalization)
  Sender: FDA-Public Use
  Company Number: AU-009507513-1307AUS008406

PATIENT
  Age: 1 Year
  Sex: 0

DRUGS (1)
  1. CLARATYNE [Suspect]
     Dosage: 10 MG INSTEAD OF 2.5 MG
     Route: 048
     Dates: start: 20120313

REACTIONS (3)
  - Adverse event [Unknown]
  - Overdose [Unknown]
  - Drug administered to patient of inappropriate age [Unknown]
